FAERS Safety Report 8618542-1 (Version None)
Quarter: 2012Q3

REPORT INFORMATION
  Report Type: 
  Country: None (occurrence: None)
  Receive Date: 20120824
  Receipt Date: 20120817
  Transmission Date: 20120928
  Serious: No
  Sender: FDA-Public Use
  Company Number: US-PFIZER INC-2012115184

PATIENT
  Age: 50 Year
  Sex: Female
  Weight: 102 kg

DRUGS (12)
  1. LISINOPRIL [Concomitant]
     Indication: DIABETES MELLITUS
     Dosage: 2.5 MG, 1X/DAY
  2. ZANTAC [Concomitant]
     Dosage: UNK
  3. EFFEXOR XR [Concomitant]
     Indication: DEPRESSION
     Dosage: 150 MG DAILY
  4. EFFEXOR [Concomitant]
     Dosage: UNK
  5. CYMBALTA [Concomitant]
     Indication: DEPRESSION
     Dosage: 60 MG DAILY
  6. GLUCOTROL XL [Suspect]
     Indication: DIABETES PROPHYLAXIS
     Dosage: 10 MG, 1X/DAY
     Route: 048
  7. NORVASC [Concomitant]
     Indication: RAYNAUD'S PHENOMENON
     Dosage: 10 MG, UNK
  8. GLUCOTROL XL [Suspect]
     Dosage: UNK
     Route: 048
  9. GLUCOPHAGE [Concomitant]
     Indication: DIABETES MELLITUS
     Dosage: 500 MG, 2X/DAY
  10. PEPCID [Concomitant]
     Dosage: UNK
  11. ADDERALL [Concomitant]
     Indication: HYPERSOMNIA
     Dosage: 20 MG DAILY
  12. METHOTREXATE [Concomitant]
     Dosage: UNK

REACTIONS (3)
  - MEDICATION RESIDUE [None]
  - PRODUCT SOLUBILITY ABNORMAL [None]
  - DRUG INEFFECTIVE [None]
